FAERS Safety Report 4882332-6 (Version None)
Quarter: 2006Q1

REPORT INFORMATION
  Report Type: 
  Country: None (occurrence: None)
  Receive Date: 20060117
  Receipt Date: 20051017
  Transmission Date: 20060701
  Serious: Yes (Hospitalization)
  Sender: FDA-Public Use
  Company Number: CA-ROCHE-421381

PATIENT
  Age: 48 Year
  Sex: Female
  Weight: 56.6 kg

DRUGS (12)
  1. DACLIZUMAB [Suspect]
     Route: 042
     Dates: start: 20040630, end: 20040630
  2. DACLIZUMAB [Suspect]
     Route: 042
     Dates: end: 20040825
  3. MYCOPHENOLATE MOFETIL [Suspect]
     Dosage: FREQUENCY REPORTED AS ^DIE^.
     Route: 048
     Dates: start: 20040630
  4. SIROLIMUS [Suspect]
     Dosage: FREQUENCY REPORTED AS DIE.
     Route: 048
     Dates: start: 20040630
  5. CORTICOSTEROIDS [Suspect]
     Route: 065
  6. ACTONEL [Concomitant]
     Dates: start: 20040824
  7. MONOCOR [Concomitant]
     Route: 048
     Dates: start: 20040826
  8. CALCIUM GLUCONATE [Concomitant]
     Dates: start: 20040824
  9. VITAMINE D [Concomitant]
     Route: 048
     Dates: start: 20040824
  10. LIPITOR [Concomitant]
     Dates: start: 20040909
  11. LASIX [Concomitant]
     Dates: start: 20040428
  12. ZANTAC [Concomitant]
     Dates: start: 20040703

REACTIONS (5)
  - CULTURE URINE POSITIVE [None]
  - DISEASE RECURRENCE [None]
  - ESCHERICHIA INFECTION [None]
  - PATHOGEN RESISTANCE [None]
  - PYELONEPHRITIS ACUTE [None]
